FAERS Safety Report 8509042-8 (Version None)
Quarter: 2012Q3

REPORT INFORMATION
  Report Type: 
  Country: None (occurrence: None)
  Receive Date: 20120703
  Receipt Date: 20120627
  Transmission Date: 20120928
  Serious: Yes (Life-Threatening)
  Sender: FDA-Public Use
  Company Number: 2012SP036332

PATIENT
  Age: 50 Year
  Sex: Female

DRUGS (4)
  1. REMIFENTANIL [Concomitant]
  2. ROCURONIUM BROMIDE [Suspect]
     Indication: PRODUCT USED FOR UNKNOWN INDICATION
  3. PROPOFOL [Concomitant]
  4. CHLORHEXIDINE GLUCONATE [Concomitant]

REACTIONS (1)
  - DRUG HYPERSENSITIVITY [None]
